FAERS Safety Report 23588521 (Version 1)
Quarter: 2024Q1

REPORT INFORMATION
  Report Type: Spontaneous
  Country: CN (occurrence: CN)
  Receive Date: 20240302
  Receipt Date: 20240302
  Transmission Date: 20240410
  Serious: Yes (Other)
  Sender: FDA-Public Use
  Company Number: CN-AMGEN-CHNSP2024039866

PATIENT
  Age: 25 Year
  Sex: Female

DRUGS (3)
  1. BLINCYTO [Suspect]
     Active Substance: BLINATUMOMAB
     Indication: Prophylaxis
     Dosage: 9 MICROGRAM, INTRAVENOUS DRIP
     Route: 042
     Dates: start: 20240216, end: 20240217
  2. BLINCYTO [Suspect]
     Active Substance: BLINATUMOMAB
     Dosage: 9 MICROGRAM, INTRAVENOUS DRIP
     Route: 042
     Dates: start: 20240217, end: 20240219
  3. BLINCYTO [Suspect]
     Active Substance: BLINATUMOMAB
     Dosage: 28 MICROGRAM, INTRAVENOUS DRIP
     Route: 042
     Dates: start: 20240220, end: 20240223

REACTIONS (3)
  - Palpitations [Recovering/Resolving]
  - Pyrexia [Recovering/Resolving]
  - Rash pruritic [Recovering/Resolving]

NARRATIVE: CASE EVENT DATE: 20240217
